FAERS Safety Report 18758657 (Version 1)
Quarter: 2021Q1

REPORT INFORMATION
  Report Type: Spontaneous
  Country: US (occurrence: US)
  Receive Date: 20210120
  Receipt Date: 20210120
  Transmission Date: 20210419
  Serious: Yes (Hospitalization, Other)
  Sender: FDA-Public Use
  Company Number: US-AUROBINDO-AUR-APL-2021-001875

PATIENT
  Age: 77 Year
  Sex: Male

DRUGS (2)
  1. DIPHENHYDRAMINE. [Suspect]
     Active Substance: DIPHENHYDRAMINE
     Indication: INSOMNIA
     Dosage: 250 MILLIGRAM, ONCE A DAY AT NIGHT
     Route: 065
  2. DIPHENHYDRAMINE. [Suspect]
     Active Substance: DIPHENHYDRAMINE
     Dosage: 750 MILLIGRAM, ONCE A DAY AT NIGHT

REACTIONS (8)
  - Pain in extremity [Unknown]
  - Dementia [Unknown]
  - Amnesia [Unknown]
  - Urinary retention [Recovered/Resolved]
  - Deep vein thrombosis [Unknown]
  - Executive dysfunction [Unknown]
  - Cognitive disorder [Unknown]
  - Intentional product misuse [Unknown]
